FAERS Safety Report 4536816-0 (Version None)
Quarter: 2004Q4

REPORT INFORMATION
  Report Type: 
  Country: None (occurrence: None)
  Receive Date: 20041220
  Receipt Date: 20041208
  Transmission Date: 20050328
  Serious: Yes (Life-Threatening)
  Sender: FDA-Public Use
  Company Number: OSCN-NO-0412S-0365

PATIENT
  Age: 58 Year
  Sex: Male

DRUGS (1)
  1. OMNISCAN [Suspect]
     Indication: MYELITIS
     Dosage: 16 ML, SINGLE DOSE, I.V.
     Route: 042
     Dates: start: 20041206, end: 20041206

REACTIONS (5)
  - CONTRAST MEDIA REACTION [None]
  - LIVER FUNCTION TEST ABNORMAL [None]
  - MUSCLE CRAMP [None]
  - PYREXIA [None]
  - SHOCK [None]
